FAERS Safety Report 14317208 (Version 1)
Quarter: 2017Q4

REPORT INFORMATION
  Report Type: Spontaneous
  Country: TR (occurrence: TR)
  Receive Date: 20171222
  Receipt Date: 20171222
  Transmission Date: 20180321
  Serious: Yes (Other)
  Sender: FDA-Public Use
  Company Number: TR-ORION CORPORATION ORION PHARMA-ENTC2017-0563

PATIENT
  Age: 70 Year
  Sex: Male

DRUGS (1)
  1. STALEVO [Suspect]
     Active Substance: CARBIDOPA\ENTACAPONE\LEVODOPA
     Indication: PARKINSON^S DISEASE
     Dosage: STRENGTH: 150/37.5/200 MG
     Route: 048

REACTIONS (3)
  - Product supply issue [Unknown]
  - Gait disturbance [Unknown]
  - Drug dose omission [Unknown]
